FAERS Safety Report 24087142 (Version 1)
Quarter: 2024Q3

REPORT INFORMATION
  Report Type: Spontaneous
  Country: AU (occurrence: AU)
  Receive Date: 20240713
  Receipt Date: 20240713
  Transmission Date: 20241017
  Serious: Yes (Other)
  Sender: ACCORD
  Company Number: None

PATIENT
  Age: 48 Year
  Sex: Female

DRUGS (5)
  1. CARBOPLATIN [Suspect]
     Active Substance: CARBOPLATIN
     Indication: Product used for unknown indication
  2. CYCLOPHOSPHAMIDE [Suspect]
     Active Substance: CYCLOPHOSPHAMIDE
     Indication: Product used for unknown indication
  3. PACLITAXEL [Suspect]
     Active Substance: PACLITAXEL
     Indication: Product used for unknown indication
  4. ADRIAMYCIN [Suspect]
     Active Substance: DOXORUBICIN HYDROCHLORIDE
     Indication: Product used for unknown indication
  5. PEMBROLIZUMAB [Suspect]
     Active Substance: PEMBROLIZUMAB
     Indication: Product used for unknown indication

REACTIONS (16)
  - Chest pain [Unknown]
  - Atrial fibrillation [Unknown]
  - Immune-mediated thyroiditis [Unknown]
  - Pericardial effusion [Unknown]
  - Pulmonary oedema [Unknown]
  - C-reactive protein increased [Unknown]
  - Chills [Unknown]
  - Mobility decreased [Unknown]
  - Neck pain [Unknown]
  - Oropharyngeal pain [Unknown]
  - Pain [Unknown]
  - Pharyngeal swelling [Unknown]
  - Pleural effusion [Unknown]
  - Product use in unapproved indication [Unknown]
  - Pyrexia [Unknown]
  - Rash [Unknown]
